FAERS Safety Report 9270532 (Version 1)
Quarter: 2013Q2

REPORT INFORMATION
  Report Type: Spontaneous
  Country: US (occurrence: US)
  Receive Date: 20130503
  Receipt Date: 20130503
  Transmission Date: 20140414
  Serious: No
  Sender: FDA-Public Use
  Company Number: US-009507513-1304USA017659

PATIENT
  Sex: Female

DRUGS (2)
  1. DR. SCHOLL^S FREEZE AWAY DUAL ACTION COMMON + PLANTAR WART REMOVER [Suspect]
     Indication: SKIN PAPILLOMA
     Dosage: 1 DF, QD
     Route: 061
  2. DR. SCHOLL^S FREEZE AWAY DUAL ACTION COMMON + PLANTAR WART REMOVER [Suspect]
     Indication: MEDICAL OBSERVATION

REACTIONS (1)
  - Therapeutic product ineffective [Unknown]
